FAERS Safety Report 12555142 (Version 2)
Quarter: 2016Q3

REPORT INFORMATION
  Report Type: Spontaneous
  Country: US (occurrence: US)
  Receive Date: 20160714
  Receipt Date: 20160810
  Transmission Date: 20161109
  Serious: Yes (Hospitalization)
  Sender: FDA-Public Use
  Company Number: US-ROCHE-1793268

PATIENT
  Age: 54 Year
  Sex: Female

DRUGS (1)
  1. ERIVEDGE [Suspect]
     Active Substance: VISMODEGIB
     Indication: NASAL CAVITY CANCER
     Route: 048
     Dates: start: 20151231

REACTIONS (4)
  - Alopecia [Unknown]
  - Muscle spasms [Unknown]
  - Intestinal obstruction [Unknown]
  - Ulcer [Unknown]

NARRATIVE: CASE EVENT DATE: 20160708
